FAERS Safety Report 20000613 (Version 1)
Quarter: 2021Q4

REPORT INFORMATION
  Report Type: Spontaneous
  Country: US (occurrence: US)
  Receive Date: 20211026
  Receipt Date: 20211026
  Transmission Date: 20220303
  Serious: No
  Sender: FDA-Public Use
  Company Number: None

PATIENT
  Age: 68 Year
  Sex: Female
  Weight: 63 kg

DRUGS (10)
  1. SUTAB [Suspect]
     Active Substance: MAGNESIUM SULFATE\POTASSIUM CHLORIDE\SODIUM SULFATE
     Indication: Colonoscopy
     Dosage: ?OTHER STRENGTH:GRAM;??QUANTITY:24 TABLET(S);?OTHER FREQUENCY:12 TABS Q 4 HRS;
     Route: 048
     Dates: start: 20210923, end: 20210923
  2. ANASTROZOLE [Concomitant]
     Active Substance: ANASTROZOLE
  3. AMLODIPINE BES [Concomitant]
  4. ASPIRIN [Concomitant]
     Active Substance: ASPIRIN
  5. LIPITOR [Concomitant]
     Active Substance: ATORVASTATIN CALCIUM
  6. HYDROCHLOROTHIAZIDE [Concomitant]
     Active Substance: HYDROCHLOROTHIAZIDE
  7. CALCIUM W/D3 [Concomitant]
  8. FOLIC ACID [Concomitant]
     Active Substance: FOLIC ACID
  9. MAGNESIUM [Concomitant]
     Active Substance: MAGNESIUM
  10. VITAMINS [Concomitant]
     Active Substance: VITAMINS

REACTIONS (3)
  - Pain [None]
  - Abdominal distension [None]
  - Gastric perforation [None]

NARRATIVE: CASE EVENT DATE: 20210923
